FAERS Safety Report 12876323 (Version 3)
Quarter: 2016Q4

REPORT INFORMATION
  Report Type: Spontaneous
  Country: JP (occurrence: JP)
  Receive Date: 20161024
  Receipt Date: 20161122
  Transmission Date: 20170207
  Serious: Yes (Hospitalization, Other)
  Sender: FDA-Public Use
  Company Number: JP-FERRINGPH-2016FE05601

PATIENT

DRUGS (5)
  1. MINIRINMELT [Suspect]
     Active Substance: DESMOPRESSIN ACETATE
     Indication: DIABETES INSIPIDUS
     Dosage: UNK
     Route: 048
  2. MINIRINMELT [Suspect]
     Active Substance: DESMOPRESSIN ACETATE
     Dosage: 60 ?G, 2 TIMES DAILY
     Route: 048
  3. DESMOPRESSIN [Suspect]
     Active Substance: DESMOPRESSIN
     Indication: DIABETES INSIPIDUS
     Dosage: UNK
     Route: 045
  4. MINIRINMELT [Suspect]
     Active Substance: DESMOPRESSIN ACETATE
     Dosage: 60 ?G, 1 TIME DAILY
     Route: 048
     Dates: start: 2014, end: 201512
  5. ROHYPNOL [Concomitant]
     Active Substance: FLUNITRAZEPAM
     Indication: INSOMNIA
     Route: 048

REACTIONS (34)
  - Blood pressure increased [Not Recovered/Not Resolved]
  - Polyuria [Not Recovered/Not Resolved]
  - Hyperaesthesia [Unknown]
  - Speech disorder [Unknown]
  - Mental disorder [Unknown]
  - Thirst [Not Recovered/Not Resolved]
  - Peripheral swelling [Unknown]
  - Headache [Unknown]
  - Constipation [Unknown]
  - Confusional state [Unknown]
  - Contusion [Recovered/Resolved]
  - Dehydration [Not Recovered/Not Resolved]
  - Photophobia [Not Recovered/Not Resolved]
  - Somnolence [Unknown]
  - Tinnitus [Recovered/Resolved]
  - Dizziness [Unknown]
  - Nausea [Unknown]
  - Loss of consciousness [Unknown]
  - Insomnia [Recovered/Resolved]
  - Visual impairment [Unknown]
  - Rash [Recovering/Resolving]
  - Pruritus generalised [Unknown]
  - Oedema [Unknown]
  - Blood glucose increased [Unknown]
  - Dyspnoea [Recovered/Resolved]
  - Water intoxication [Not Recovered/Not Resolved]
  - Presyncope [Unknown]
  - Hyponatraemia [Not Recovered/Not Resolved]
  - Affect lability [Not Recovered/Not Resolved]
  - Glycosylated haemoglobin increased [Not Recovered/Not Resolved]
  - Weight decreased [Not Recovered/Not Resolved]
  - Drug effect variable [Not Recovered/Not Resolved]
  - Vomiting [Unknown]
  - Malaise [Unknown]

NARRATIVE: CASE EVENT DATE: 201512
